FAERS Safety Report 6755693-0 (Version None)
Quarter: 2010Q2

REPORT INFORMATION
  Report Type: 
  Country: None (occurrence: None)
  Receive Date: 20100604
  Receipt Date: 20100602
  Transmission Date: 20101027
  Serious: Yes (Life-Threatening, Hospitalization)
  Sender: FDA-Public Use
  Company Number: DE-ASTRAZENECA-2010SE25355

PATIENT
  Age: 28 Year
  Sex: Female
  Weight: 82 kg

DRUGS (6)
  1. SEROQUEL [Suspect]
     Route: 048
  2. REMERGIL [Suspect]
     Indication: BIPOLAR I DISORDER
     Route: 048
     Dates: start: 20100417, end: 20100417
  3. REMERGIL [Suspect]
     Route: 048
     Dates: start: 20100428, end: 20100501
  4. VALPROATE SODIUM [Concomitant]
     Indication: BIPOLAR I DISORDER
     Dates: start: 20100328, end: 20100501
  5. SERTRALIN [Concomitant]
     Indication: BIPOLAR I DISORDER
     Dates: start: 20100428, end: 20100501
  6. RISPERDAL [Concomitant]
     Indication: BIPOLAR I DISORDER
     Dates: start: 20100404, end: 20100501

REACTIONS (2)
  - DISEASE PROGRESSION [None]
  - SUICIDE ATTEMPT [None]
